FAERS Safety Report 22534443 (Version 1)
Quarter: 2023Q2

REPORT INFORMATION
  Report Type: Spontaneous
  Country: CN (occurrence: CN)
  Receive Date: 20230608
  Receipt Date: 20230608
  Transmission Date: 20230721
  Serious: Yes (Other)
  Sender: FDA-Public Use
  Company Number: None

PATIENT
  Age: 34 Year
  Sex: Female
  Weight: 66 kg

DRUGS (7)
  1. CYCLOPHOSPHAMIDE [Suspect]
     Active Substance: CYCLOPHOSPHAMIDE
     Indication: Chemotherapy
     Dosage: 950 MG, QD, DILUTED WITH SODIUM CHLORIDE (50 ML), FIRST CYCLE OF CHEMOTHERAPY
     Route: 042
     Dates: start: 20230210, end: 20230210
  2. CYCLOPHOSPHAMIDE [Suspect]
     Active Substance: CYCLOPHOSPHAMIDE
     Indication: Breast cancer female
  3. EPIRUBICIN HYDROCHLORIDE [Suspect]
     Active Substance: EPIRUBICIN HYDROCHLORIDE
     Indication: Chemotherapy
     Dosage: 138 MG, QD, DOSAGE UNIT: DROP, DILUTED WITH SODIUM CHLORIDE (100 ML), FIRST CYCLE OF CHEMOTHERAPY
     Route: 041
     Dates: start: 20230210, end: 20230210
  4. EPIRUBICIN HYDROCHLORIDE [Suspect]
     Active Substance: EPIRUBICIN HYDROCHLORIDE
     Indication: Breast cancer female
  5. SODIUM CHLORIDE [Suspect]
     Active Substance: SODIUM CHLORIDE
     Indication: Medication dilution
     Dosage: 50 ML, QD, USED TO DILUTE CYCLOPHOSPHAMIDE (950 MG), FIRST CYCLE OF CHEMOTHERAPY
     Route: 042
     Dates: start: 20230210, end: 20230210
  6. SODIUM CHLORIDE [Suspect]
     Active Substance: SODIUM CHLORIDE
     Dosage: 100 ML, QD, USED TO DILUTE EPIRUBICIN HYDROCHLORIDE (138 MG), FIRST CYCLE OF CHEMOTHERAPY
     Route: 041
     Dates: start: 20230210, end: 20230210
  7. Jin you li [Concomitant]
     Dosage: 6 MG
     Route: 058
     Dates: start: 20230211

REACTIONS (2)
  - White blood cell count decreased [Recovered/Resolved]
  - Agranulocytosis [Recovered/Resolved]

NARRATIVE: CASE EVENT DATE: 20230218
